FAERS Safety Report 12521325 (Version 1)
Quarter: 2016Q3

REPORT INFORMATION
  Report Type: Spontaneous
  Country: US (occurrence: US)
  Receive Date: 20160701
  Receipt Date: 20160701
  Transmission Date: 20161109
  Serious: Yes (Other)
  Sender: FDA-Public Use
  Company Number: US-THE MEDICINES COMPANY-US-MDCO-16-00230

PATIENT
  Age: 79 Year
  Sex: Female

DRUGS (6)
  1. ORBACTIV [Suspect]
     Active Substance: ORITAVANCIN
     Indication: CELLULITIS
     Route: 041
  2. ORBACTIV [Suspect]
     Active Substance: ORITAVANCIN
     Route: 041
  3. VANCOMYCIN [Concomitant]
     Active Substance: VANCOMYCIN
     Indication: CELLULITIS
     Dosage: NOT REPORTED
  4. VANCOMYCIN [Concomitant]
     Active Substance: VANCOMYCIN
     Dosage: NOT REPORTED
  5. CEFUROXIME. [Concomitant]
     Active Substance: CEFUROXIME
     Indication: CELLULITIS
     Dosage: NOT REPORTED
  6. CEPHALEXIN. [Concomitant]
     Active Substance: CEPHALEXIN
     Indication: CELLULITIS
     Dosage: NOT REPORTED

REACTIONS (6)
  - Oxygen saturation decreased [Recovering/Resolving]
  - Muscle spasms [Recovering/Resolving]
  - Chest pain [Recovering/Resolving]
  - Chest discomfort [Recovering/Resolving]
  - Off label use [Recovering/Resolving]
  - Back pain [Recovering/Resolving]
